FAERS Safety Report 13023042 (Version 1)
Quarter: 2016Q4

REPORT INFORMATION
  Report Type: Spontaneous
  Country: US (occurrence: US)
  Receive Date: 20161213
  Receipt Date: 20161213
  Transmission Date: 20170207
  Serious: No
  Sender: FDA-Public Use
  Company Number: US-TEVA-641353USA

PATIENT
  Age: 39 Year
  Sex: Male
  Weight: 81.72 kg

DRUGS (1)
  1. AZITHROMYCIN ANHYDROUS. [Suspect]
     Active Substance: AZITHROMYCIN ANHYDROUS
     Indication: RESPIRATORY TRACT INFECTION
     Dates: start: 20160224, end: 20160228

REACTIONS (4)
  - Chest discomfort [Recovered/Resolved]
  - Heart rate irregular [Recovered/Resolved]
  - Gastrooesophageal reflux disease [Recovered/Resolved]
  - Extrasystoles [Recovered/Resolved]

NARRATIVE: CASE EVENT DATE: 20160224
